FAERS Safety Report 4460479-6 (Version None)
Quarter: 2004Q3

REPORT INFORMATION
  Report Type: 
  Country: None (occurrence: None)
  Receive Date: 20040923
  Receipt Date: 20040909
  Transmission Date: 20050211
  Serious: Yes (Hospitalization, Other)
  Sender: FDA-Public Use
  Company Number: GBR-2004-0001152

PATIENT
  Age: 60 Year
  Sex: Female

DRUGS (2)
  1. MORPHINE SULFATE [Suspect]
     Indication: CANCER PAIN
     Dosage: 90 MG, BID, ORAL
     Route: 048
  2. NALBUPHINE [Suspect]
     Indication: ANALGESIC EFFECT
     Dosage: 30 MG, DAILY, INTRAVENOUS
     Route: 042

REACTIONS (9)
  - AGITATION [None]
  - DRUG INTERACTION [None]
  - DRUG RESISTANCE [None]
  - DRUG WITHDRAWAL SYNDROME [None]
  - DYSKINESIA [None]
  - HYPERHIDROSIS [None]
  - HYPERTENSION [None]
  - LIMB INJURY [None]
  - TACHYCARDIA [None]
